FAERS Safety Report 7557704-1 (Version None)
Quarter: 2011Q2

REPORT INFORMATION
  Report Type: 
  Country: None (occurrence: None)
  Receive Date: 20110620
  Receipt Date: 20110308
  Transmission Date: 20111010
  Serious: No
  Sender: FDA-Public Use
  Company Number: JP-JNJFOC-20110307044

PATIENT
  Sex: Male

DRUGS (3)
  1. ZYRTEC [Suspect]
     Route: 048
     Dates: start: 19980601, end: 19980716
  2. XYZAL [Suspect]
     Indication: RHINITIS
     Route: 048
     Dates: start: 20110121, end: 20110224
  3. ZYRTEC [Suspect]
     Indication: RHINITIS
     Route: 048
     Dates: start: 20110121, end: 20110224

REACTIONS (1)
  - LIVER FUNCTION TEST ABNORMAL [None]
